FAERS Safety Report 9183836 (Version 1)
Quarter: 2013Q1

REPORT INFORMATION
  Report Type: Spontaneous
  Country: US (occurrence: US)
  Receive Date: 20130322
  Receipt Date: 20130322
  Transmission Date: 20140127
  Serious: Yes (Other)
  Sender: FDA-Public Use
  Company Number: US-BRISTOL-MYERS SQUIBB COMPANY-16631129

PATIENT
  Age: 56 Year
  Sex: Male

DRUGS (3)
  1. ERBITUX [Suspect]
     Indication: HEAD AND NECK CANCER
     Dosage: 10C00060 EXP DT:MAR2013?LOADING DOSE:400MG/M2?ONLY 1 DOSE
     Route: 042
     Dates: start: 20120403
  2. BENADRYL [Concomitant]
     Indication: PREMEDICATION
     Route: 042
  3. TYLENOL [Concomitant]
     Indication: PREMEDICATION
     Route: 048

REACTIONS (1)
  - Infusion related reaction [Not Recovered/Not Resolved]
